FAERS Safety Report 12223165 (Version 2)
Quarter: 2016Q2

REPORT INFORMATION
  Report Type: Spontaneous
  Country: US (occurrence: US)
  Receive Date: 20160330
  Receipt Date: 20160401
  Transmission Date: 20160815
  Serious: Yes (Other)
  Sender: FDA-Public Use
  Company Number: US-MDT-ADR-2016-00592

PATIENT
  Sex: Male

DRUGS (2)
  1. COMPOUNDED BACLOFEN [Suspect]
     Active Substance: BACLOFEN
     Dosage: 151.5MCG/DAY
     Route: 037
  2. COMPOUNDED MORPHINE [Suspect]
     Active Substance: MORPHINE
     Route: 037

REACTIONS (1)
  - Underdose [None]
